FAERS Safety Report 25472848 (Version 1)
Quarter: 2025Q2

REPORT INFORMATION
  Report Type: Spontaneous
  Country: US (occurrence: US)
  Receive Date: 20250624
  Receipt Date: 20250624
  Transmission Date: 20250717
  Serious: Yes (Hospitalization)
  Sender: MYLAN
  Company Number: US-MYLANLABS-2025M1052507

PATIENT
  Age: 29 Year
  Sex: Female

DRUGS (32)
  1. LEVETIRACETAM [Suspect]
     Active Substance: LEVETIRACETAM
     Indication: Encephalitis autoimmune
  2. LEVETIRACETAM [Suspect]
     Active Substance: LEVETIRACETAM
     Route: 065
  3. LEVETIRACETAM [Suspect]
     Active Substance: LEVETIRACETAM
     Route: 065
  4. LEVETIRACETAM [Suspect]
     Active Substance: LEVETIRACETAM
  5. VALPROIC ACID [Suspect]
     Active Substance: VALPROIC ACID
     Indication: Encephalitis autoimmune
  6. VALPROIC ACID [Suspect]
     Active Substance: VALPROIC ACID
  7. VALPROIC ACID [Suspect]
     Active Substance: VALPROIC ACID
     Route: 065
  8. VALPROIC ACID [Suspect]
     Active Substance: VALPROIC ACID
     Route: 065
  9. VALPROIC ACID [Suspect]
     Active Substance: VALPROIC ACID
  10. VALPROIC ACID [Suspect]
     Active Substance: VALPROIC ACID
  11. VALPROIC ACID [Suspect]
     Active Substance: VALPROIC ACID
     Route: 065
  12. VALPROIC ACID [Suspect]
     Active Substance: VALPROIC ACID
     Route: 065
  13. PHENYTOIN [Suspect]
     Active Substance: PHENYTOIN
     Indication: Encephalitis autoimmune
  14. PHENYTOIN [Suspect]
     Active Substance: PHENYTOIN
     Route: 065
  15. PHENYTOIN [Suspect]
     Active Substance: PHENYTOIN
     Route: 065
  16. PHENYTOIN [Suspect]
     Active Substance: PHENYTOIN
  17. OXCARBAZEPINE [Suspect]
     Active Substance: OXCARBAZEPINE
     Indication: Encephalitis autoimmune
  18. OXCARBAZEPINE [Suspect]
     Active Substance: OXCARBAZEPINE
     Route: 065
  19. OXCARBAZEPINE [Suspect]
     Active Substance: OXCARBAZEPINE
     Route: 065
  20. OXCARBAZEPINE [Suspect]
     Active Substance: OXCARBAZEPINE
  21. METHYLPREDNISOLONE [Suspect]
     Active Substance: METHYLPREDNISOLONE
     Indication: Encephalitis autoimmune
  22. METHYLPREDNISOLONE [Suspect]
     Active Substance: METHYLPREDNISOLONE
     Route: 065
  23. METHYLPREDNISOLONE [Suspect]
     Active Substance: METHYLPREDNISOLONE
     Route: 065
  24. METHYLPREDNISOLONE [Suspect]
     Active Substance: METHYLPREDNISOLONE
  25. PHENOBARBITAL [Suspect]
     Active Substance: PHENOBARBITAL
     Indication: Encephalitis autoimmune
  26. PHENOBARBITAL [Suspect]
     Active Substance: PHENOBARBITAL
     Route: 065
  27. PHENOBARBITAL [Suspect]
     Active Substance: PHENOBARBITAL
     Route: 065
  28. PHENOBARBITAL [Suspect]
     Active Substance: PHENOBARBITAL
  29. MIDAZOLAM [Suspect]
     Active Substance: MIDAZOLAM
     Indication: Encephalitis autoimmune
  30. MIDAZOLAM [Suspect]
     Active Substance: MIDAZOLAM
     Route: 065
  31. MIDAZOLAM [Suspect]
     Active Substance: MIDAZOLAM
     Route: 065
  32. MIDAZOLAM [Suspect]
     Active Substance: MIDAZOLAM

REACTIONS (3)
  - Drug ineffective for unapproved indication [Unknown]
  - Treatment noncompliance [Unknown]
  - Off label use [Unknown]
